FAERS Safety Report 10088446 (Version 1)
Quarter: 2014Q2

REPORT INFORMATION
  Report Type: Spontaneous
  Country: US (occurrence: US)
  Receive Date: 20140421
  Receipt Date: 20140421
  Transmission Date: 20141212
  Serious: No
  Sender: FDA-Public Use
  Company Number: US-BIOGENIDEC-2014BI031567

PATIENT
  Age: 60 Year
  Sex: Male

DRUGS (3)
  1. TECFIDERA [Suspect]
     Indication: MULTIPLE SCLEROSIS
     Route: 048
     Dates: start: 20140121
  2. VICODIN [Concomitant]
  3. MAXIMUM BLUE LABEL [Concomitant]

REACTIONS (3)
  - Flatulence [Unknown]
  - Dyspepsia [Unknown]
  - Nausea [Unknown]
